FAERS Safety Report 6580102-4 (Version None)
Quarter: 2010Q1

REPORT INFORMATION
  Report Type: 
  Country: None (occurrence: None)
  Receive Date: 20100212
  Receipt Date: 20100210
  Transmission Date: 20100710
  Serious: Yes (Hospitalization)
  Sender: FDA-Public Use
  Company Number: US-B.I. PHARMACEUTICALS,INC./RIDGEFIELD-2010-BP-00973BP

PATIENT
  Sex: Female

DRUGS (8)
  1. SPIRIVA [Suspect]
     Indication: CHRONIC OBSTRUCTIVE PULMONARY DISEASE
     Dosage: 18 MCG
     Route: 055
     Dates: start: 20070101
  2. SPIRIVA [Suspect]
     Indication: DYSPNOEA
  3. FOSAMAX [Concomitant]
  4. COMBIVENT [Concomitant]
     Indication: CHRONIC OBSTRUCTIVE PULMONARY DISEASE
     Dosage: 4 PUF
  5. TIKOSYN [Concomitant]
  6. DILTIAZEM CD [Concomitant]
  7. ADVAIR DISKUS 100/50 [Concomitant]
     Dosage: 2 PUF
  8. ALENDRONATE SODIUM [Concomitant]

REACTIONS (4)
  - FALL [None]
  - HEART RATE IRREGULAR [None]
  - HIP FRACTURE [None]
  - PNEUMONIA [None]
